FAERS Safety Report 5761194-9 (Version None)
Quarter: 2008Q2

REPORT INFORMATION
  Report Type: 
  Country: None (occurrence: None)
  Receive Date: 20080606
  Receipt Date: 20080529
  Transmission Date: 20081010
  Serious: Yes (Hospitalization)
  Sender: FDA-Public Use
  Company Number: B0523860A

PATIENT
  Age: 64 Year
  Sex: Female
  Weight: 65 kg

DRUGS (3)
  1. AUGMENTIN '125' [Suspect]
     Indication: PNEUMONIA BACTERIAL
     Dosage: 1G TWICE PER DAY
     Route: 048
     Dates: start: 20080212, end: 20080213
  2. DAFALGAN [Concomitant]
     Route: 048
  3. METAMIZOLE SODIUM [Concomitant]
     Route: 048

REACTIONS (5)
  - ANURIA [None]
  - POLYURIA [None]
  - RENAL FAILURE ACUTE [None]
  - RENAL TUBULAR NECROSIS [None]
  - VOMITING [None]
